FAERS Safety Report 20078606 (Version 2)
Quarter: 2021Q4

REPORT INFORMATION
  Report Type: Spontaneous
  Country: BR (occurrence: BR)
  Receive Date: 20211117
  Receipt Date: 20211129
  Transmission Date: 20220303
  Serious: Yes (Hospitalization, Other)
  Sender: FDA-Public Use
  Company Number: BR-CELLTRION INC.-2021BR015071

PATIENT

DRUGS (20)
  1. HERZUMA [Suspect]
     Active Substance: TRASTUZUMAB-PKRB
     Indication: Breast cancer
     Dosage: 420 MG, ADMINISTRATION EVERY 21 DAYS; 12 CYCLES; STARTING DOSE IS 8MG/KG AND SUBSEQUENT DOSES (EVERY
     Route: 065
     Dates: start: 20210707
  2. HERZUMA [Suspect]
     Active Substance: TRASTUZUMAB-PKRB
     Dosage: 708 MG
     Dates: start: 20210915
  3. HERZUMA [Suspect]
     Active Substance: TRASTUZUMAB-PKRB
     Dosage: UNK
     Dates: start: 20211028
  4. PERJETA [Suspect]
     Active Substance: PERTUZUMAB
     Indication: Breast cancer
     Dosage: 3 MG/KG
     Route: 042
     Dates: start: 20210707
  5. PERJETA [Suspect]
     Active Substance: PERTUZUMAB
     Dosage: UNK
     Dates: start: 20210915
  6. PERJETA [Suspect]
     Active Substance: PERTUZUMAB
     Dosage: STARTING DOSE
  7. PERJETA [Suspect]
     Active Substance: PERTUZUMAB
     Dosage: SUBSEQUENT CYCLES
  8. PERJETA [Suspect]
     Active Substance: PERTUZUMAB
     Dosage: UNK
     Dates: start: 20211028
  9. PACLITAXEL [Suspect]
     Active Substance: PACLITAXEL
     Indication: Breast cancer
     Dosage: EACH CYCLE IS COMPOSED OF D1, D8 AND D15 AND THAT THE INTERVAL BETWEEN CYCLES IS 28 DAYS; 3 ADMINIST
  10. PACLITAXEL [Suspect]
     Active Substance: PACLITAXEL
     Dosage: 80MG/M2 - WEEKLY - D1 TO D8 - 4 CYCLES
     Route: 042
     Dates: start: 20210707
  11. PACLITAXEL [Suspect]
     Active Substance: PACLITAXEL
     Dosage: 60 MG/M2 - WEEKLY
     Route: 042
  12. PACLITAXEL [Suspect]
     Active Substance: PACLITAXEL
     Dosage: UNK
     Dates: start: 20210915
  13. PACLITAXEL [Suspect]
     Active Substance: PACLITAXEL
     Dosage: UNK
     Dates: start: 20211003
  14. DIPHENHYDRAMINE [Concomitant]
     Active Substance: DIPHENHYDRAMINE
     Indication: Chemotherapy side effect prophylaxis
     Dosage: NOT INFORMED
     Route: 042
     Dates: start: 20210707
  15. GRANISETRONE [Concomitant]
     Indication: Chemotherapy side effect prophylaxis
     Dosage: NOT INFORMED
     Route: 042
     Dates: start: 20210707
  16. DEXAMETHASONE [Concomitant]
     Active Substance: DEXAMETHASONE
     Indication: Chemotherapy side effect prophylaxis
     Dosage: NOT INFORMED
     Route: 042
     Dates: start: 20210707
  17. PROPRANOLOL [Concomitant]
     Active Substance: PROPRANOLOL HYDROCHLORIDE
     Indication: Hypertension
     Dosage: 40 MG,1X/DAY
     Route: 048
  18. SYNVASTIN [Concomitant]
     Indication: Dyslipidaemia
     Dosage: 1 PILL/DAY
     Route: 048
  19. EXEMESTANE [Concomitant]
     Active Substance: EXEMESTANE
     Dosage: 25/MG ORALLY DAILY, 1 TABLET A DAY
     Route: 048
  20. SIMVASTATIN [Concomitant]
     Active Substance: SIMVASTATIN

REACTIONS (5)
  - Leukopenia [Recovered/Resolved]
  - Neutropenia [Recovered/Resolved]
  - Neuropathy peripheral [Unknown]
  - Underdose [Unknown]
  - Treatment delayed [Unknown]

NARRATIVE: CASE EVENT DATE: 20210903
